FAERS Safety Report 25788570 (Version 1)
Quarter: 2025Q3

REPORT INFORMATION
  Report Type: Spontaneous
  Country: US (occurrence: US)
  Receive Date: 20250910
  Receipt Date: 20250910
  Transmission Date: 20251021
  Serious: Yes (Other)
  Sender: AMGEN
  Company Number: US-AMGEN-USASP2025177265

PATIENT
  Age: 62 Year
  Sex: Male

DRUGS (5)
  1. APREMILAST [Suspect]
     Active Substance: APREMILAST
     Indication: Psoriasis
     Route: 065
  2. APREMILAST [Suspect]
     Active Substance: APREMILAST
     Indication: Psoriatic arthropathy
  3. ATEZOLIZUMAB [Concomitant]
     Active Substance: ATEZOLIZUMAB
     Indication: Bladder cancer stage IV
  4. ETOPOSIDE [Concomitant]
     Active Substance: ETOPOSIDE
     Indication: Bladder cancer stage IV
  5. CARBOPLATIN [Concomitant]
     Active Substance: CARBOPLATIN
     Indication: Bladder cancer stage IV

REACTIONS (2)
  - Bladder cancer [Unknown]
  - Therapy partial responder [Unknown]
